FAERS Safety Report 7469105-5 (Version None)
Quarter: 2011Q2

REPORT INFORMATION
  Report Type: 
  Country: None (occurrence: None)
  Receive Date: 20110510
  Receipt Date: 20110426
  Transmission Date: 20111010
  Serious: Yes (Other)
  Sender: FDA-Public Use
  Company Number: US-ELI_LILLY_AND_COMPANY-US201104008126

PATIENT
  Age: 49 Year
  Sex: Female

DRUGS (4)
  1. CYMBALTA [Suspect]
     Indication: FIBROMYALGIA
     Dosage: 60 MG, EACH EVENING
  2. CYMBALTA [Suspect]
     Dosage: 30 MG, EACH EVENING
  3. MILNACIPRAN [Concomitant]
     Indication: FIBROMYALGIA
     Dosage: UNK, UNKNOWN
  4. DESIPRAMIDE HCL [Concomitant]
     Indication: PAIN
     Dosage: UNK, UNKNOWN

REACTIONS (17)
  - VISION BLURRED [None]
  - MALAISE [None]
  - WEIGHT DECREASED [None]
  - SOMNOLENCE [None]
  - WEIGHT INCREASED [None]
  - DRUG WITHDRAWAL SYNDROME [None]
  - THINKING ABNORMAL [None]
  - TINNITUS [None]
  - VOMITING [None]
  - DIARRHOEA [None]
  - PARAESTHESIA [None]
  - EATING DISORDER [None]
  - ATTENTION DEFICIT/HYPERACTIVITY DISORDER [None]
  - MEMORY IMPAIRMENT [None]
  - CEREBROVASCULAR ACCIDENT [None]
  - CONFUSIONAL STATE [None]
  - DISORIENTATION [None]
